FAERS Safety Report 8901053 (Version 1)
Quarter: 2012Q4

REPORT INFORMATION
  Report Type: 
  Country: TR (occurrence: TR)
  Receive Date: 20121109
  Receipt Date: 20121109
  Transmission Date: 20130627
  Serious: Yes (Hospitalization)
  Sender: FDA-Public Use
  Company Number: TR-US-EMD SERONO, INC.-7172448

PATIENT
  Age: 20 Year
  Sex: Male
  Weight: 57 kg

DRUGS (4)
  1. SAIZEN [Suspect]
     Indication: GROWTH HORMONE DEFICIENCY
     Route: 058
     Dates: start: 200801, end: 20121031
  2. LEVOTHYROXINE [Suspect]
     Indication: THYROID DISORDER
     Route: 048
     Dates: start: 200801, end: 20121031
  3. HYDROCORTISONE [Suspect]
     Indication: PRODUCT USED FOR UNKNOWN INDICATION
     Route: 048
     Dates: end: 20121031
  4. UNSPECIFIED INGREDIENT [Suspect]
     Indication: PRODUCT USED FOR UNKNOWN INDICATION
     Route: 030
     Dates: end: 20121031

REACTIONS (3)
  - Intussusception [Not Recovered/Not Resolved]
  - Blood glucose decreased [Unknown]
  - Asthenia [Unknown]
